FAERS Safety Report 9667911 (Version 2)
Quarter: 2013Q4

REPORT INFORMATION
  Report Type: Report from Study
  Country: US (occurrence: US)
  Receive Date: 20131104
  Receipt Date: 20131104
  Transmission Date: 20140711
  Serious: Yes (Hospitalization)
  Sender: FDA-Public Use
  Company Number: US-ABBVIE-13P-163-1135206-00

PATIENT
  Sex: Male

DRUGS (17)
  1. HUMIRA [Suspect]
     Indication: CROHN^S DISEASE
     Dates: start: 201301, end: 201301
  2. HUMIRA [Suspect]
     Dates: start: 201302
  3. HUMIRA [Suspect]
  4. PROBIOTIC [Concomitant]
     Indication: PRODUCT USED FOR UNKNOWN INDICATION
  5. SIMVASTATIN [Concomitant]
     Indication: BLOOD CHOLESTEROL INCREASED
  6. HYDROCHLOROT [Concomitant]
     Indication: HYPERTENSION
  7. DIAZEPAM [Concomitant]
     Indication: ANXIOLYTIC THERAPY
  8. DIAZEPAM [Concomitant]
     Indication: BACK PAIN
  9. TAMSULOSIN [Concomitant]
     Indication: MICTURITION DISORDER
  10. OMEPRAZOLE [Concomitant]
     Indication: DYSPEPSIA
  11. OMEPRAZOLE [Concomitant]
     Indication: DYSPEPSIA
  12. LIALDA [Concomitant]
     Indication: CROHN^S DISEASE
  13. OXYCONTIN APAP [Concomitant]
     Indication: ARTHRITIS
     Dosage: 5/325MG Q8H PRN
  14. OXYCONTIN APAP [Concomitant]
     Indication: ARTHRALGIA
  15. ASPIRIN [Concomitant]
     Indication: PRODUCT USED FOR UNKNOWN INDICATION
  16. CITALOPRAM [Concomitant]
     Indication: ANXIOLYTIC THERAPY
  17. CITALOPRAM [Concomitant]
     Indication: DEPRESSION

REACTIONS (6)
  - Chronic obstructive pulmonary disease [Recovering/Resolving]
  - Dyspnoea [Recovering/Resolving]
  - Oxygen saturation decreased [Recovering/Resolving]
  - Clostridium difficile infection [Unknown]
  - Clostridium difficile infection [Unknown]
  - Clostridium difficile infection [Recovering/Resolving]
